FAERS Safety Report 6865921-9 (Version None)
Quarter: 2010Q3

REPORT INFORMATION
  Report Type: 
  Country: None (occurrence: None)
  Receive Date: 20100719
  Receipt Date: 20100709
  Transmission Date: 20110219
  Serious: Yes (Hospitalization)
  Sender: FDA-Public Use
  Company Number: RB-11007-2010

PATIENT
  Sex: Female

DRUGS (9)
  1. SUBOXONE [Suspect]
     Indication: DRUG DEPENDENCE
     Dosage: (8 MG TID SUBLINGUAL), (TAKES 16-24MG DAILY SUBLINGUAL)
     Route: 060
     Dates: start: 20100612, end: 20100621
  2. SUBOXONE [Suspect]
     Indication: PAIN
     Dosage: (8 MG TID SUBLINGUAL), (TAKES 16-24MG DAILY SUBLINGUAL)
     Route: 060
     Dates: start: 20100612, end: 20100621
  3. SUBOXONE [Suspect]
     Indication: DRUG DEPENDENCE
     Dosage: (8 MG TID SUBLINGUAL), (TAKES 16-24MG DAILY SUBLINGUAL)
     Route: 060
     Dates: start: 20100601
  4. SUBOXONE [Suspect]
     Indication: PAIN
     Dosage: (8 MG TID SUBLINGUAL), (TAKES 16-24MG DAILY SUBLINGUAL)
     Route: 060
     Dates: start: 20100601
  5. SUBUTEX [Suspect]
     Indication: DRUG DEPENDENCE
     Dosage: (UNKNOWN DOSING DETAILS SUBLINGUAL)
     Route: 060
     Dates: start: 20080101, end: 20080101
  6. TIZANIDINE HCL [Concomitant]
  7. ANTIDEPRESSANTS [Concomitant]
  8. ABILIFY [Concomitant]
  9. TORADOL [Concomitant]

REACTIONS (17)
  - ANXIETY [None]
  - BACK INJURY [None]
  - BLOOD PRESSURE FLUCTUATION [None]
  - CONCUSSION [None]
  - CONSTIPATION [None]
  - EYELID FUNCTION DISORDER [None]
  - FALL [None]
  - GAIT DISTURBANCE [None]
  - HEAD INJURY [None]
  - HEADACHE [None]
  - HYPOAESTHESIA [None]
  - HYPOAESTHESIA FACIAL [None]
  - LETHARGY [None]
  - LOGORRHOEA [None]
  - PARAESTHESIA [None]
  - TREMOR [None]
  - VISUAL IMPAIRMENT [None]
